FAERS Safety Report 4960307-6 (Version None)
Quarter: 2006Q1

REPORT INFORMATION
  Report Type: 
  Country: None (occurrence: None)
  Receive Date: 20060328
  Receipt Date: 20060310
  Transmission Date: 20060701
  Serious: Yes (Death, Hospitalization)
  Sender: FDA-Public Use
  Company Number: 220561

PATIENT

DRUGS (13)
  1. AVASTIN [Suspect]
     Indication: COLORECTAL CANCER METASTATIC
     Dosage: 510 MG, INTRAVENOUS
     Route: 042
     Dates: start: 20051201
  2. XELODA [Suspect]
     Indication: COLORECTAL CANCER METASTATIC
     Dosage: 3300 MG, QD, ORAL
     Route: 048
     Dates: start: 20051201
  3. NEXIUM [Concomitant]
  4. ACTONEL (RISEDRPMATE SODIUM) [Concomitant]
  5. TEMAZEPAM [Concomitant]
  6. ASPIRIN [Concomitant]
  7. SOLPRIN (ASPIRIN, CALCIUM CARBONATE, CITRIC ACID) [Concomitant]
  8. RABEPRAZOLE SODIUM [Concomitant]
  9. SALBUTAMOL (ALABUTEROL/ALBUTEROL SULFATE) [Concomitant]
  10. FLAGYL [Concomitant]
  11. HYDROCORTISONE [Concomitant]
  12. PANTOPRAZOLE SODIUM [Concomitant]
  13. LASIX [Concomitant]

REACTIONS (5)
  - ARTERIOSPASM CORONARY [None]
  - INTESTINAL OBSTRUCTION [None]
  - METASTASES TO PERITONEUM [None]
  - PULMONARY EMBOLISM [None]
  - SEPSIS [None]
